FAERS Safety Report 8565190 (Version 3)
Quarter: 2012Q4

REPORT INFORMATION
  Report Type: 
  Country: US (occurrence: US)
  Receive Date: 20120516
  Receipt Date: 20120904
  Transmission Date: 20130627
  Serious: Yes (Hospitalization, Other)
  Sender: FDA-Public Use
  Company Number: US-BAYER-2012-047629

PATIENT
  Age: 36 Year
  Sex: Female
  Weight: 51.7 kg

DRUGS (13)
  1. YAZ [Suspect]
     Indication: CONTRACEPTION
     Dosage: UNK
     Dates: start: 20070524, end: 20110718
  2. YASMIN [Suspect]
     Indication: CONTRACEPTION
     Dosage: UNK
     Dates: start: 20070524, end: 20110718
  3. OCELLA [Suspect]
     Indication: CONTRACEPTION
     Dosage: UNK
     Dates: start: 20070524, end: 20110718
  4. TYLENOL [Concomitant]
     Indication: HEADACHE
     Dosage: 2 tabs, 20 day period before onset of injuries
     Route: 048
  5. CIPRO [Concomitant]
     Dosage: 500 mg, BID for 10 days
     Route: 048
     Dates: start: 20110512
  6. ULTRAM [Concomitant]
     Indication: PAIN
     Dosage: 50 mg, BID, as needed
     Route: 048
     Dates: start: 20110512
  7. VICODIN [Concomitant]
     Indication: PAIN
     Dosage: Every 6 hours as needed
     Route: 048
     Dates: start: 20100518
  8. IBUPROFEN [Concomitant]
     Indication: PAIN
     Dosage: 800 mg, TID, as needed
     Route: 048
     Dates: start: 20110520
  9. ROBAXIN [Concomitant]
     Indication: PAIN
     Dosage: 500 mg, TID
     Route: 048
     Dates: start: 20110601
  10. FERROUS SULFATE [Concomitant]
     Dosage: One daily
     Route: 048
     Dates: start: 20110610
  11. AUGMENTIN [Concomitant]
     Dosage: 875 mg, BID
     Route: 048
     Dates: start: 20110620
  12. ZITHROMAX [Concomitant]
     Dosage: Z-pack
     Route: 048
     Dates: start: 20110620
  13. LEVAQUIN [Concomitant]
     Dosage: 750 mg, daily
     Route: 048
     Dates: start: 20110629

REACTIONS (9)
  - Pulmonary embolism [None]
  - Gallbladder disorder [None]
  - Injury [None]
  - Pain [None]
  - Emotional distress [None]
  - Back pain [None]
  - Musculoskeletal chest pain [None]
  - Dyspnoea [None]
  - Weight decreased [None]
